FAERS Safety Report 4904831-0 (Version None)
Quarter: 2006Q1

REPORT INFORMATION
  Report Type: 
  Country: None (occurrence: None)
  Receive Date: 20060208
  Receipt Date: 20051010
  Transmission Date: 20060701
  Serious: No
  Sender: FDA-Public Use
  Company Number: US-GLAXOSMITHKLINE-A0577740A

PATIENT
  Age: 52 Year
  Sex: Male

DRUGS (2)
  1. PAXIL [Suspect]
     Indication: BIPOLAR DISORDER
     Dosage: 40MG PER DAY
     Route: 048
     Dates: start: 20051001
  2. LAMICTAL [Suspect]
     Route: 048

REACTIONS (4)
  - APATHY [None]
  - DIZZINESS [None]
  - DRUG INEFFECTIVE [None]
  - TINNITUS [None]
